FAERS Safety Report 7247952-2 (Version None)
Quarter: 2011Q1

REPORT INFORMATION
  Report Type: 
  Country: None (occurrence: None)
  Receive Date: 20110127
  Receipt Date: 20110119
  Transmission Date: 20110831
  Serious: Yes (Hospitalization, Other)
  Sender: FDA-Public Use
  Company Number: BE-GENZYME-CLOF-1001346

PATIENT
  Sex: Female
  Weight: 69 kg

DRUGS (8)
  1. CYTARABINE [Suspect]
     Indication: ACUTE MYELOID LEUKAEMIA
     Dosage: 3620 MG, UNK
     Route: 042
     Dates: start: 20101103, end: 20101108
  2. CIPROXINE [Concomitant]
     Indication: PYREXIA
     Dosage: 1 G, UNK
     Route: 048
     Dates: start: 20101202, end: 20101210
  3. EVOLTRA [Suspect]
     Indication: ACUTE MYELOID LEUKAEMIA
     Dosage: 27.15 MG, UNK
     Route: 042
     Dates: start: 20101103, end: 20101107
  4. ZOVIRAX [Concomitant]
     Indication: PROPHYLAXIS
     Dosage: 1200 MG, UNK
     Route: 048
     Dates: start: 20101203, end: 20101212
  5. ORGAMETRIL [Concomitant]
     Indication: PROPHYLAXIS
     Dosage: 5 MG, UNK
     Route: 048
     Dates: start: 20100927, end: 20101210
  6. AMSACRINE [Suspect]
     Indication: ACUTE MYELOID LEUKAEMIA
     Dosage: 217 MG, UNK
     Route: 042
     Dates: start: 20101106, end: 20101108
  7. DIFLUCAN [Concomitant]
     Indication: PROPHYLAXIS
     Dosage: 200 MG, UNK
     Route: 048
     Dates: start: 20100927, end: 20101210
  8. RANITIDINE [Concomitant]
     Indication: PROPHYLAXIS
     Dosage: 300 MG, UNK
     Route: 048
     Dates: start: 20100927, end: 20101210

REACTIONS (2)
  - THROMBOCYTOPENIA [None]
  - BRONCHOPULMONARY ASPERGILLOSIS [None]
